FAERS Safety Report 23275287 (Version 1)
Quarter: 2023Q4

REPORT INFORMATION
  Report Type: Other
  Country: FR (occurrence: None)
  Receive Date: 20231208
  Receipt Date: 20231208
  Transmission Date: 20240109
  Serious: Yes (Death, Other)
  Sender: FDA-Public Use
  Company Number: FR-ROCHE-3469458

PATIENT

DRUGS (1)
  1. RITUXIMAB [Suspect]
     Active Substance: RITUXIMAB
     Indication: Anti-neutrophil cytoplasmic antibody positive vasculitis
     Route: 065

REACTIONS (13)
  - Eye infection [Fatal]
  - COVID-19 [Fatal]
  - Lung abscess [Unknown]
  - Encephalitis [Unknown]
  - Sepsis [Unknown]
  - Pneumonia bacterial [Unknown]
  - Hypogammaglobulinaemia [Unknown]
  - Pyelonephritis [Unknown]
  - Ear infection [Unknown]
  - Sinusitis [Unknown]
  - Nocardiosis [Unknown]
  - Cytomegalovirus enteritis [Unknown]
  - Dermo-hypodermitis [Unknown]
